FAERS Safety Report 4315869-9 (Version None)
Quarter: 2004Q1

REPORT INFORMATION
  Report Type: 
  Country: None (occurrence: None)
  Receive Date: 20040311
  Receipt Date: 20040301
  Transmission Date: 20041129
  Serious: Yes (Hospitalization)
  Sender: FDA-Public Use
  Company Number: US-BRISTOL-MYERS SQUIBB COMPANY-12520557

PATIENT
  Age: 38 Year
  Sex: Male

DRUGS (3)
  1. CISPLATIN [Suspect]
     Indication: TESTICULAR GERM CELL CANCER
     Dosage: 20 MG/M2
     Route: 042
  2. ETOPOSIDE [Suspect]
     Indication: TESTICULAR GERM CELL CANCER
     Dosage: 250 MG/M2
     Route: 042
  3. IFOSFAMIDE [Suspect]
     Indication: TESTICULAR GERM CELL CANCER
     Dosage: 2000 MG/M2
     Route: 042

REACTIONS (6)
  - CEREBRAL HAEMORRHAGE [None]
  - CEREBRAL INFARCTION [None]
  - INFARCTION [None]
  - ISCHAEMIC CEREBRAL INFARCTION [None]
  - NEUROTOXICITY [None]
  - URINARY INCONTINENCE [None]
